FAERS Safety Report 6694761-9 (Version None)
Quarter: 2010Q2

REPORT INFORMATION
  Report Type: 
  Country: None (occurrence: None)
  Receive Date: 20100423
  Receipt Date: 20100419
  Transmission Date: 20101027
  Serious: Yes (Hospitalization)
  Sender: FDA-Public Use
  Company Number: B0648279A

PATIENT
  Sex: Female

DRUGS (2)
  1. HYCAMTIN [Suspect]
     Dosage: 1.3MG PER DAY
     Route: 042
     Dates: start: 20100120, end: 20100120
  2. CISPLATIN [Suspect]
     Dosage: 45MG PER DAY
     Route: 042
     Dates: start: 20100120, end: 20100120

REACTIONS (4)
  - PYELONEPHRITIS ACUTE [None]
  - RENAL FAILURE ACUTE [None]
  - RENAL FAILURE CHRONIC [None]
  - RENAL TUBULAR NECROSIS [None]
